FAERS Safety Report 19185585 (Version 1)
Quarter: 2021Q2

REPORT INFORMATION
  Report Type: Spontaneous
  Country: JP (occurrence: JP)
  Receive Date: 20210427
  Receipt Date: 20210427
  Transmission Date: 20210717
  Serious: Yes (Death, Hospitalization, Other)
  Sender: FDA-Public Use
  Company Number: JP-LUPIN PHARMACEUTICALS INC.-2021-05333

PATIENT
  Age: 74 Year
  Sex: Female

DRUGS (3)
  1. METHYLPREDNISOLONE. [Suspect]
     Active Substance: METHYLPREDNISOLONE
     Indication: PANCREATITIS ACUTE
     Dosage: 40 MILLIGRAM, 1MG/KG
     Route: 065
  2. PAZOPANIB [Concomitant]
     Active Substance: PAZOPANIB
     Indication: RENAL CELL CARCINOMA RECURRENT
     Dosage: UNK
     Route: 065
  3. METHYLPREDNISOLONE. [Suspect]
     Active Substance: METHYLPREDNISOLONE
     Indication: IMMUNE-MEDIATED PANCREATITIS

REACTIONS (4)
  - Drug ineffective [Fatal]
  - Blood electrolytes abnormal [Fatal]
  - Condition aggravated [Fatal]
  - Respiratory failure [Fatal]
